FAERS Safety Report 12080936 (Version 3)
Quarter: 2017Q2

REPORT INFORMATION
  Report Type: Spontaneous
  Country: US (occurrence: US)
  Receive Date: 20160216
  Receipt Date: 20170420
  Transmission Date: 20170829
  Serious: No
  Sender: FDA-Public Use
  Company Number: US-009507513-1602USA005223

PATIENT
  Sex: Male

DRUGS (2)
  1. KEYTRUDA [Suspect]
     Active Substance: PEMBROLIZUMAB
     Indication: SQUAMOUS CELL CARCINOMA OF SKIN
     Dosage: 2 MG/KG, Q3W
     Route: 041
  2. KEYTRUDA [Suspect]
     Active Substance: PEMBROLIZUMAB
     Indication: SKIN SQUAMOUS CELL CARCINOMA METASTATIC

REACTIONS (8)
  - Cortisol decreased [Recovered/Resolved]
  - Fatigue [Unknown]
  - Hypothyroidism [Recovered/Resolved]
  - Chills [Unknown]
  - Malaise [Unknown]
  - Weight decreased [Unknown]
  - Therapy partial responder [Unknown]
  - Arthralgia [Unknown]
